FAERS Safety Report 4733257-8 (Version None)
Quarter: 2005Q3

REPORT INFORMATION
  Report Type: 
  Country: None (occurrence: None)
  Receive Date: 20050721
  Receipt Date: 20050601
  Transmission Date: 20060218
  Serious: No
  Sender: FDA-Public Use
  Company Number: 2005SP000884

PATIENT
  Age: 60 Year
  Sex: Female
  Weight: 64.8644 kg

DRUGS (1)
  1. LUNESTA [Suspect]
     Indication: INSOMNIA
     Dosage: UNKNOWN;1X;ORAL
     Route: 048
     Dates: start: 20050526, end: 20050526

REACTIONS (2)
  - ACCIDENTAL OVERDOSE [None]
  - AMNESIA [None]
